FAERS Safety Report 15903898 (Version 1)
Quarter: 2019Q1

REPORT INFORMATION
  Report Type: Spontaneous
  Country: DE (occurrence: DE)
  Receive Date: 20190204
  Receipt Date: 20190204
  Transmission Date: 20190417
  Serious: Yes (Death, Life-Threatening, Hospitalization)
  Sender: FDA-Public Use
  Company Number: DE-ACCORD-105221

PATIENT
  Age: 54 Year
  Sex: Male
  Weight: 75 kg

DRUGS (11)
  1. PANTOPRAZOLE [Concomitant]
     Active Substance: PANTOPRAZOLE
     Dosage: 40 MG, 1-0-0-0, TABLETS
     Route: 048
  2. TINCTURA OPII [Concomitant]
     Dosage: 3 GTT, 1-0-1-0, DROPS
     Route: 048
  3. ARANESP [Concomitant]
     Active Substance: DARBEPOETIN ALFA
     Dosage: STRENGTH : 10 MICROGRAMS, 1X PER WEEK, INJECTION / INFUSION SOLUTION
     Route: 058
  4. CARVEDILOL/CARVEDILOL HYDROCHLODRIDE [Concomitant]
     Dosage: 6.25 MG, 1-0-0.5-0, TABLETS
     Route: 048
  5. IMODIUM [Concomitant]
     Active Substance: LOPERAMIDE HYDROCHLORIDE
     Dosage: BEDARF, TABLETS
     Route: 048
  6. MAGNESIUM CITRATE/MAGNESIUM GLUTAMATE/MAGNESIUM NICOTINATE [Concomitant]
     Dosage: 1-0-0-0, TABLETS
     Route: 048
  7. FERINJECT [Concomitant]
     Active Substance: FERRIC CARBOXYMALTOSE
     Dosage: 50 MG, ALLE 3-4 WEEKS, INJECTION / INFUSION SOLUTION
     Route: 042
  8. FUROSEMIDE. [Suspect]
     Active Substance: FUROSEMIDE
     Indication: PRODUCT USED FOR UNKNOWN INDICATION
     Dosage: 250 MG, 1-1-0-0, TABLETS
     Route: 048
  9. ADENURIC [Concomitant]
     Active Substance: FEBUXOSTAT
     Dosage: STRENGTH : 80MG. 80 MG, 3X PRO WOCH, TABLETS
     Route: 048
  10. CALCIUM CARBONATE. [Concomitant]
     Active Substance: CALCIUM CARBONATE
     Dosage: 1000 MG, 1-0-1-0, TABLETS
     Route: 048
  11. ROCATROL [Concomitant]
     Dosage: 0.25 UG, 1-0-0-0, CAPSULES
     Route: 048

REACTIONS (3)
  - Product prescribing error [Unknown]
  - Dizziness [Unknown]
  - Renal impairment [Unknown]
